FAERS Safety Report 9152927 (Version 1)
Quarter: 2013Q1

REPORT INFORMATION
  Report Type: Spontaneous
  Country: US (occurrence: US)
  Receive Date: 20130307
  Receipt Date: 20130307
  Transmission Date: 20140127
  Serious: Yes (Other)
  Sender: FDA-Public Use
  Company Number: US-RB-050679-13

PATIENT
  Sex: Female
  Weight: 3.19 kg

DRUGS (3)
  1. SUBOXONE FILM [Suspect]
     Indication: DRUG DEPENDENCE
     Dosage: SUBOXONE FILM
     Route: 064
     Dates: start: 201203, end: 2012
  2. SUBOXONE FILM [Suspect]
     Dosage: SUBOXONE FILM
     Route: 064
     Dates: start: 2012, end: 20130106
  3. NICOTINE [Suspect]
     Indication: TOBACCO USER
     Dosage: 5 CIGARETTES/DAILY
     Route: 064

REACTIONS (3)
  - Foetal exposure during pregnancy [Recovered/Resolved]
  - Drug withdrawal syndrome neonatal [Recovered/Resolved]
  - Thyroid disorder [Not Recovered/Not Resolved]
